APPROVED DRUG PRODUCT: BREATHTEK UBT FOR H-PYLORI
Active Ingredient: UREA C-13
Strength: EQ 75MG/POUCH
Dosage Form/Route: FOR SOLUTION;ORAL
Application: N020586 | Product #002
Applicant: OTSUKA AMERICA PHARMACEUTICALS INC
Approved: May 10, 2001 | RLD: No | RS: No | Type: DISCN